FAERS Safety Report 11981798 (Version 1)
Quarter: 2016Q1

REPORT INFORMATION
  Report Type: Spontaneous
  Country: CA (occurrence: CA)
  Receive Date: 20160201
  Receipt Date: 20160201
  Transmission Date: 20160526
  Serious: Yes (Life-Threatening, Hospitalization)
  Sender: FDA-Public Use
  Company Number: CA-TEVA-629627ACC

PATIENT
  Age: 70 Year
  Sex: Male
  Weight: 79 kg

DRUGS (6)
  1. GEMCITABINE [Suspect]
     Active Substance: GEMCITABINE\GEMCITABINE HYDROCHLORIDE
     Indication: ADENOCARCINOMA PANCREAS
     Route: 042
  2. IBUPROFEN. [Concomitant]
     Active Substance: IBUPROFEN
  3. ACETAMINOPHEN. [Concomitant]
     Active Substance: ACETAMINOPHEN
  4. ABRAXANE [Concomitant]
     Active Substance: PACLITAXEL
     Route: 042
  5. ATIVAN [Concomitant]
     Active Substance: LORAZEPAM
  6. GLYBURIDE. [Concomitant]
     Active Substance: GLYBURIDE

REACTIONS (1)
  - Interstitial lung disease [Unknown]
